FAERS Safety Report 6409142-2 (Version None)
Quarter: 2009Q4

REPORT INFORMATION
  Report Type: 
  Country: None (occurrence: None)
  Receive Date: 20091021
  Receipt Date: 20091008
  Transmission Date: 20100525
  Serious: Yes (Hospitalization, Other)
  Sender: FDA-Public Use
  Company Number: PHHY2009JP07847

PATIENT
  Sex: Male

DRUGS (8)
  1. AMN107 AMN+CAP [Suspect]
     Indication: CHRONIC MYELOID LEUKAEMIA TRANSFORMATION
     Dosage: 800 MG DAILY
     Route: 048
     Dates: start: 20090219, end: 20090305
  2. AMN107 AMN+CAP [Suspect]
     Dosage: 800 MG DAILY
     Route: 048
     Dates: start: 20090319, end: 20090408
  3. AMN107 AMN+CAP [Suspect]
     Dosage: 200 MG DAILY
     Route: 048
     Dates: start: 20090413, end: 20090508
  4. AMN107 AMN+CAP [Suspect]
     Dosage: 400 MG DAILY
     Route: 048
     Dates: start: 20090509, end: 20090510
  5. AMN107 AMN+CAP [Suspect]
     Dosage: 800 MG DAILY
     Route: 048
     Dates: start: 20090511, end: 20090513
  6. VINCRISTINE SULFATE [Concomitant]
     Indication: CHRONIC MYELOID LEUKAEMIA TRANSFORMATION
     Dosage: UNK
     Route: 042
     Dates: end: 20090304
  7. NEUPOGEN [Concomitant]
     Indication: PANCYTOPENIA
     Dosage: UNK
     Dates: end: 20090304
  8. ADRIACIN [Concomitant]

REACTIONS (7)
  - BONE MARROW FAILURE [None]
  - ELECTROCARDIOGRAM QT PROLONGED [None]
  - FACE OEDEMA [None]
  - PANCYTOPENIA [None]
  - PLEURAL EFFUSION [None]
  - PNEUMONIA [None]
  - RASH [None]
